FAERS Safety Report 24751625 (Version 1)
Quarter: 2024Q4

REPORT INFORMATION
  Report Type: Spontaneous
  Country: IR (occurrence: IR)
  Receive Date: 20241219
  Receipt Date: 20241219
  Transmission Date: 20250114
  Serious: Yes (Other)
  Sender: RANBAXY
  Company Number: IR-SUN PHARMACEUTICAL INDUSTRIES LTD-2024R1-485140

PATIENT
  Age: 20 Year
  Sex: Male

DRUGS (3)
  1. DIPHENHYDRAMINE [Suspect]
     Active Substance: DIPHENHYDRAMINE
     Indication: Antiallergic therapy
     Dosage: 10 MILLIGRAM
     Route: 042
  2. HYDROCORTISONE [Suspect]
     Active Substance: HYDROCORTISONE
     Indication: Antiallergic therapy
     Dosage: 100 MILLIGRAM
     Route: 042
  3. FAMOTIDINE [Suspect]
     Active Substance: FAMOTIDINE
     Indication: Antiallergic therapy
     Dosage: 40 MILLIGRAM
     Route: 065

REACTIONS (2)
  - Oxygen saturation decreased [Unknown]
  - Anaphylactic reaction [Unknown]
